FAERS Safety Report 24351627 (Version 1)
Quarter: 2024Q3

REPORT INFORMATION
  Report Type: Spontaneous
  Country: JP (occurrence: JP)
  Receive Date: 20240923
  Receipt Date: 20240923
  Transmission Date: 20241017
  Serious: No
  Sender: ROCHE
  Company Number: JP-CHUGAI-2024013227

PATIENT
  Age: 6 Decade
  Sex: Female

DRUGS (3)
  1. HERCEPTIN [Suspect]
     Active Substance: TRASTUZUMAB
     Indication: Breast cancer
     Dosage: 400 MILLIGRAM, ONCE/3WEEKS?MOST RECENT DOSE: 05/DEC/2023
     Route: 065
     Dates: start: 20231003, end: 20231205
  2. PERJETA [Suspect]
     Active Substance: PERTUZUMAB
     Indication: Breast cancer
     Dosage: 840 MILLIGRAM, SINGLE
     Route: 065
     Dates: start: 20231003, end: 20231003
  3. PERJETA [Suspect]
     Active Substance: PERTUZUMAB
     Dosage: 420 MILLIGRAM, ONCE/3WEEKS?MOST RECENT DOSE: 05/DEC/2023
     Route: 065
     Dates: start: 20231024, end: 20231205

REACTIONS (1)
  - Pyrexia [Recovered/Resolved]

NARRATIVE: CASE EVENT DATE: 20231024
